FAERS Safety Report 8137431 (Version 6)
Quarter: 2012Q4

REPORT INFORMATION
  Report Type: 
  Country: US (occurrence: US)
  Receive Date: 20110915
  Receipt Date: 20121218
  Transmission Date: 20130627
  Serious: Yes (Other)
  Sender: FDA-Public Use
  Company Number: US-ROCHE-790628

PATIENT
  Age: 88 Year
  Sex: Male

DRUGS (1)
  1. AVASTIN [Suspect]
     Indication: GLAUCOMA
     Dosage: DOSE : 0.05 ML , FREQUENCY : X 1
     Route: 050
     Dates: start: 20110706, end: 20110706

REACTIONS (20)
  - Endophthalmitis [Recovering/Resolving]
  - Streptococcus test positive [Recovering/Resolving]
  - Blindness unilateral [Recovering/Resolving]
  - Presbyopia [Unknown]
  - Retinal degeneration [Unknown]
  - Age-related macular degeneration [Unknown]
  - Cataract [Unknown]
  - Ocular hypertension [Unknown]
  - Retinal vein occlusion [Unknown]
  - Keratitis [Unknown]
  - Corneal degeneration [Unknown]
  - Corneal oedema [Unknown]
  - Glaucoma [Unknown]
  - Eye disorder [Unknown]
  - Phlebitis [Unknown]
  - Eyeball avulsion [Unknown]
  - Refraction disorder [Unknown]
  - Macular degeneration [Unknown]
  - Eye prosthesis insertion [Unknown]
  - Product quality issue [Unknown]
